FAERS Safety Report 10619971 (Version 2)
Quarter: 2015Q2

REPORT INFORMATION
  Report Type: Spontaneous
  Country: JP (occurrence: JP)
  Receive Date: 20141202
  Receipt Date: 20150407
  Transmission Date: 20150821
  Serious: Yes (Other)
  Sender: FDA-Public Use
  Company Number: JP-BAYER-2014-172646

PATIENT
  Age: 58 Year
  Sex: Female

DRUGS (2)
  1. BAYASPIRIN [Suspect]
     Active Substance: ASPIRIN
     Route: 048
  2. WARFARIN [Concomitant]
     Active Substance: WARFARIN
     Route: 048

REACTIONS (1)
  - Cholecystitis acute [Recovering/Resolving]
